FAERS Safety Report 4445597-0 (Version None)
Quarter: 2004Q3

REPORT INFORMATION
  Report Type: 
  Country: None (occurrence: None)
  Receive Date: 20040903
  Receipt Date: 20040823
  Transmission Date: 20050211
  Serious: Yes (Death)
  Sender: FDA-Public Use
  Company Number: 2004230119FR

PATIENT
  Age: 9 Year
  Sex: Male

DRUGS (4)
  1. GENOTROPIN [Suspect]
     Indication: RENAL FAILURE CHRONIC
     Dosage: 13.2 MJG/WEEK, 6 MJS PER WEEK, SUBCUTANEOUS
     Route: 058
     Dates: start: 20020514
  2. LASIX [Concomitant]
  3. HUMINSULIN PROFILI (INSULIN HUMAN INJECTION, ISOPHANE) [Concomitant]
  4. CORTANCYL [Concomitant]

REACTIONS (1)
  - DEATH [None]
